FAERS Safety Report 9795170 (Version 1)
Quarter: 2014Q1

REPORT INFORMATION
  Report Type: Spontaneous
  Country: US (occurrence: US)
  Receive Date: 20140103
  Receipt Date: 20140103
  Transmission Date: 20141002
  Serious: No
  Sender: FDA-Public Use
  Company Number: US-BIOGENIDEC-2013BI095785

PATIENT
  Sex: Female

DRUGS (3)
  1. AVONEX [Suspect]
     Indication: MULTIPLE SCLEROSIS
     Route: 030
     Dates: start: 20090605, end: 20120824
  2. AVONEX [Suspect]
     Indication: MULTIPLE SCLEROSIS
     Route: 030
     Dates: start: 20121207
  3. TYSABRI [Concomitant]
     Indication: MULTIPLE SCLEROSIS
     Route: 042
     Dates: start: 20120913

REACTIONS (3)
  - JC virus test positive [Unknown]
  - Drug ineffective [Recovered/Resolved]
  - Multiple sclerosis relapse [Unknown]
